FAERS Safety Report 22313251 (Version 5)
Quarter: 2024Q3

REPORT INFORMATION
  Report Type: Spontaneous
  Country: CA (occurrence: CA)
  Receive Date: 20230512
  Receipt Date: 20240712
  Transmission Date: 20241017
  Serious: Yes (Other)
  Sender: MYLAN
  Company Number: CA-MYLANLABS-2023M1041626

PATIENT
  Sex: Female
  Weight: 49.89 kg

DRUGS (5)
  1. EFFEXOR XR [Suspect]
     Active Substance: VENLAFAXINE HYDROCHLORIDE
     Indication: Depression
     Dosage: 1 DOSAGE FORM, QD (ONE CAPSULE ONCE A DAY FOR 1 WEEK THEN, 2 CAPSULES ONCE A DAY)
     Route: 065
     Dates: start: 20141110
  2. EFFEXOR XR [Suspect]
     Active Substance: VENLAFAXINE HYDROCHLORIDE
     Indication: Anxiety
     Dosage: 1 DOSAGE FORM, BID (ONE CAPSULE DAILY FOR 1 WEEK THEN, 1 CAPSULE 2 TIMES A DAY)
     Route: 065
     Dates: start: 2014
  3. EFFEXOR XR [Suspect]
     Active Substance: VENLAFAXINE HYDROCHLORIDE
     Dosage: 2 DOSAGE FORM, QD (ONE CAPSULE ONCE A DAY FOR 1 WEEK THEN, 2 CAPSULES ONCE A DAY)
     Route: 065
     Dates: end: 201703
  4. EFFEXOR XR [Suspect]
     Active Substance: VENLAFAXINE HYDROCHLORIDE
     Dosage: UNK
     Route: 065
     Dates: start: 20150201
  5. ACETAMINOPHEN\OXYCODONE HYDROCHLORIDE [Suspect]
     Active Substance: ACETAMINOPHEN\OXYCODONE HYDROCHLORIDE
     Indication: Product used for unknown indication
     Dosage: UNK
     Route: 065

REACTIONS (27)
  - Kidney infection [Not Recovered/Not Resolved]
  - Pneumonia [Unknown]
  - Angle closure glaucoma [Unknown]
  - Hallucination [Not Recovered/Not Resolved]
  - Suicidal ideation [Unknown]
  - Vision blurred [Not Recovered/Not Resolved]
  - Electric shock sensation [Not Recovered/Not Resolved]
  - Renal pain [Not Recovered/Not Resolved]
  - Speech disorder [Not Recovered/Not Resolved]
  - Hypoaesthesia [Not Recovered/Not Resolved]
  - Loss of libido [Not Recovered/Not Resolved]
  - Urinary tract infection [Unknown]
  - Intervertebral disc degeneration [Unknown]
  - Abdominal distension [Unknown]
  - Feeling of despair [Unknown]
  - Depression [Unknown]
  - Mental disorder [Unknown]
  - Fear [Unknown]
  - Anger [Unknown]
  - Emotional disorder [Unknown]
  - Asthenia [Not Recovered/Not Resolved]
  - Hyperhidrosis [Not Recovered/Not Resolved]
  - Mood altered [Unknown]
  - Irritability [Unknown]
  - Bruxism [Unknown]
  - Fatigue [Unknown]
  - Rash [Unknown]

NARRATIVE: CASE EVENT DATE: 20160101
